FAERS Safety Report 11230230 (Version 3)
Quarter: 2015Q3

REPORT INFORMATION
  Report Type: Report from Study
  Country: AU (occurrence: AU)
  Receive Date: 20150701
  Receipt Date: 20150713
  Transmission Date: 20151125
  Serious: Yes (Other)
  Sender: FDA-Public Use
  Company Number: PHHY2015AU065300

PATIENT
  Age: 16 Year
  Sex: Male

DRUGS (2)
  1. CLOZARIL [Suspect]
     Active Substance: CLOZAPINE
     Indication: SCHIZOPHRENIA, PARANOID TYPE
     Dosage: 225 MG, QHS (AT NIGHT)
     Route: 048
     Dates: start: 20120130
  2. CLOZARIL [Suspect]
     Active Substance: CLOZAPINE
     Indication: SCHIZOPHRENIA

REACTIONS (16)
  - C-reactive protein increased [Unknown]
  - Weight increased [Not Recovered/Not Resolved]
  - Tricuspid valve incompetence [Unknown]
  - Chest pain [Unknown]
  - Mild mental retardation [Unknown]
  - Troponin T increased [Unknown]
  - Left ventricular hypertrophy [Unknown]
  - Blood calcium decreased [Unknown]
  - Sinus rhythm [Unknown]
  - Asperger^s disorder [Unknown]
  - Sinus tachycardia [Not Recovered/Not Resolved]
  - Electrocardiogram abnormal [Unknown]
  - Mitral valve incompetence [Unknown]
  - Myocardial necrosis marker increased [Unknown]
  - Blood albumin decreased [Unknown]
  - Central obesity [Unknown]

NARRATIVE: CASE EVENT DATE: 20120131
